FAERS Safety Report 10522457 (Version 2)
Quarter: 2014Q4

REPORT INFORMATION
  Report Type: Report from Study
  Country: NL (occurrence: NL)
  Receive Date: 20141016
  Receipt Date: 20141020
  Transmission Date: 20150528
  Serious: Yes (Other)
  Sender: FDA-Public Use
  Company Number: NL-SA-2014SA138953

PATIENT
  Age: 40 Year
  Sex: Male
  Weight: 83 kg

DRUGS (4)
  1. THYRAX DUOTAB [Concomitant]
     Active Substance: LEVOTHYROXINE
     Indication: THYROIDECTOMY
     Route: 048
  2. PARACETAMOL [Concomitant]
     Active Substance: ACETAMINOPHEN
     Indication: PAIN
     Route: 048
  3. THYROGEN [Suspect]
     Active Substance: THYROTROPIN ALFA
     Indication: DIAGNOSTIC PROCEDURE
     Route: 030
     Dates: start: 20141006, end: 20141007
  4. DICLOFENAC SODIUM. [Concomitant]
     Active Substance: DICLOFENAC SODIUM
     Indication: PAIN
     Route: 048

REACTIONS (5)
  - Choking [Unknown]
  - Headache [Recovered/Resolved]
  - Nausea [Recovered/Resolved]
  - Cough [Recovered/Resolved]
  - Eructation [Recovered/Resolved]

NARRATIVE: CASE EVENT DATE: 20141006
